FAERS Safety Report 20731399 (Version 5)
Quarter: 2023Q1

REPORT INFORMATION
  Report Type: Report from Study
  Country: BR (occurrence: BR)
  Receive Date: 20220420
  Receipt Date: 20230113
  Transmission Date: 20230418
  Serious: Yes (Other)
  Sender: FDA-Public Use
  Company Number: BR-JNJFOC-20220428507

PATIENT
  Age: 48 Year
  Sex: Male
  Weight: 81 kg

DRUGS (5)
  1. INFLIXIMAB [Suspect]
     Active Substance: INFLIXIMAB
     Indication: Rheumatoid arthritis
     Route: 041
     Dates: start: 20220330
  2. INFLIXIMAB [Suspect]
     Active Substance: INFLIXIMAB
     Indication: Rheumatoid arthritis
     Dosage: INFLIXIMAB 100 MG VIAL
     Route: 041
     Dates: start: 20220330
  3. INFLIXIMAB [Suspect]
     Active Substance: INFLIXIMAB
     Dosage: INFLIXIMAB 100 MG VIAL; 2ND DOSE.
     Route: 041
     Dates: start: 20220413
  4. REMICADE [Suspect]
     Active Substance: INFLIXIMAB
     Indication: Rheumatoid arthritis
     Route: 041
     Dates: start: 20220413
  5. DECADRON [Concomitant]
     Active Substance: DEXAMETHASONE
     Indication: Premedication
     Route: 065

REACTIONS (9)
  - Angioedema [Recovering/Resolving]
  - Malaise [Recovering/Resolving]
  - Hyperhidrosis [Recovering/Resolving]
  - Infusion related reaction [Recovering/Resolving]
  - Dyspnoea [Recovered/Resolved]
  - Blood pressure immeasurable [Unknown]
  - Paraesthesia [Unknown]
  - Hypersensitivity [Recovered/Resolved]
  - Pruritus [Unknown]

NARRATIVE: CASE EVENT DATE: 20220413
